FAERS Safety Report 22234721 (Version 2)
Quarter: 2023Q4

REPORT INFORMATION
  Report Type: Spontaneous
  Country: CA (occurrence: CA)
  Receive Date: 20230420
  Receipt Date: 20231130
  Transmission Date: 20240110
  Serious: Yes (Other)
  Sender: FDA-Public Use
  Company Number: CA-PFIZER INC-2021106491

PATIENT
  Age: 73 Year
  Sex: Female

DRUGS (32)
  1. RUXIENCE [Suspect]
     Active Substance: RITUXIMAB-PVVR
     Indication: Rheumatoid arthritis
     Dosage: 1000 MG, DAY 1 AND DAY 15
     Route: 042
     Dates: start: 20210308, end: 20210322
  2. RUXIENCE [Suspect]
     Active Substance: RITUXIMAB-PVVR
     Dosage: 1000 MG, DAY 1 AND DAY 15
     Route: 042
     Dates: start: 20211203, end: 20211216
  3. RUXIENCE [Suspect]
     Active Substance: RITUXIMAB-PVVR
     Dosage: 1000 MG, DAY 1 AND DAY 15
     Route: 042
     Dates: start: 20220711
  4. RUXIENCE [Suspect]
     Active Substance: RITUXIMAB-PVVR
     Dosage: 1000 MG, DAY 1 AND DAY 15
     Route: 042
     Dates: start: 20220711, end: 20220726
  5. RUXIENCE [Suspect]
     Active Substance: RITUXIMAB-PVVR
     Dosage: 1000 MG, DAY 1 AND DAY 15
     Route: 042
     Dates: start: 20220726
  6. RUXIENCE [Suspect]
     Active Substance: RITUXIMAB-PVVR
     Dosage: 1000 MG AFTER 9 MONTHS (DAY 1 RE-INDUCTION DOSE)
     Route: 042
     Dates: start: 20230417
  7. RUXIENCE [Suspect]
     Active Substance: RITUXIMAB-PVVR
     Dosage: 1000 MG, DAY 1 AND DAY 15
     Route: 042
     Dates: start: 20230503
  8. RUXIENCE [Suspect]
     Active Substance: RITUXIMAB-PVVR
     Dosage: 1000 MG, DAY 1
     Route: 042
     Dates: start: 20231122
  9. ACETAMINOPHEN [Concomitant]
     Active Substance: ACETAMINOPHEN
     Indication: Premedication
     Dosage: 650 MG
     Route: 048
     Dates: start: 20220711, end: 20220711
  10. ACETAMINOPHEN [Concomitant]
     Active Substance: ACETAMINOPHEN
     Dosage: UNK
     Dates: start: 20231122, end: 20231122
  11. ADALAT [Concomitant]
     Active Substance: NIFEDIPINE
     Dosage: 1 DF (UNKNOWN DOSE, FREQUENCY)
  12. ASPIRIN [Concomitant]
     Active Substance: ASPIRIN
     Dosage: 81 MG
  13. BISOPROLOL [Concomitant]
     Active Substance: BISOPROLOL\BISOPROLOL FUMARATE
     Dosage: 1 DF (UNKNOWN DOSE, FREQUENCY  )
  14. CALCIUM [Concomitant]
     Active Substance: CALCIUM
     Dosage: 1 DF (UNKNOWN DOSE, FREQUENCY)
  15. DICLOFENAC [Concomitant]
     Active Substance: DICLOFENAC
     Dosage: 1 DF (UNKNOWN DOSE, FREQUENCY)
  16. DIPHENHYDRAMINE [Concomitant]
     Active Substance: DIPHENHYDRAMINE
     Indication: Premedication
     Dosage: 50 MG
     Route: 048
     Dates: start: 20220711, end: 20220711
  17. DIPHENHYDRAMINE [Concomitant]
     Active Substance: DIPHENHYDRAMINE
     Dosage: UNK
     Dates: start: 20231122, end: 20231122
  18. ESTROGENS, CONJUGATED [Concomitant]
     Active Substance: ESTROGENS, CONJUGATED
     Dosage: 1 DF (UNKNOWN DOSE, FREQUENCY)
  19. HYDROMORPHONE HYDROCHLORIDE [Concomitant]
     Active Substance: HYDROMORPHONE HYDROCHLORIDE
     Dosage: 1 DF (UNKNOWN DOSE)
  20. IRON [Concomitant]
     Active Substance: IRON
     Dosage: 1 DF (UNKNOWN DOSE, FREQUENCY)
  21. LEFLUNOMIDE [Concomitant]
     Active Substance: LEFLUNOMIDE
     Dosage: 1 DF (UNKNOWN DOSE, FREQUENCY)
  22. METHYLPREDNISOLONE [Concomitant]
     Active Substance: METHYLPREDNISOLONE
     Indication: Premedication
     Dosage: 100 MG
     Route: 042
     Dates: start: 20220711, end: 20220711
  23. METHYLPREDNISOLONE [Concomitant]
     Active Substance: METHYLPREDNISOLONE
     Dosage: UNK
     Dates: start: 20231122, end: 20231122
  24. PANTOPRAZOLE [Concomitant]
     Active Substance: PANTOPRAZOLE
     Dosage: 1 DF (UNKNOWN DOSE, FREQUENCY)
  25. PREDNISONE [Concomitant]
     Active Substance: PREDNISONE
     Dosage: 1 DF (UNKNOWN DOSE, FREQUENCY)
  26. POTASSIUM CHLORIDE [Concomitant]
     Active Substance: POTASSIUM CHLORIDE
     Dosage: 1 DF (UNKNOWN DOSE, FREQUENCY)
  27. ROSUVASTATIN [Concomitant]
     Active Substance: ROSUVASTATIN
     Dosage: 1 DF (UNKNOWN DOSE, FREQUENCY)
  28. VITAMIN B12 [Concomitant]
     Active Substance: CYANOCOBALAMIN
     Dosage: 1 DF (UNKNOWN DOSE, FREQUENCY)
  29. VITAMIN D NOS [Concomitant]
     Active Substance: VITAMIN D NOS
     Dosage: 1 DF (UNKNOWN DOSE, FREQUENCY)
  30. POTASSIUM [Concomitant]
     Active Substance: POTASSIUM
     Dosage: 1 DF UNKNOWN DOSE, FREQUENCY
  31. HYDROMORPHONE [Concomitant]
     Active Substance: HYDROMORPHONE
     Dosage: 1 DF UNKNOWN DOSE
  32. ESTROGENS [Concomitant]
     Active Substance: ESTROGENS
     Dosage: 1 DF UNKNOWN DOSE, FREQUENCY

REACTIONS (9)
  - Rheumatoid arthritis [Unknown]
  - Hypertension [Not Recovered/Not Resolved]
  - Ankle fracture [Not Recovered/Not Resolved]
  - Oedema peripheral [Recovering/Resolving]
  - Heart rate decreased [Recovered/Resolved]
  - Off label use [Unknown]
  - Off label use [Unknown]
  - Intentional product use issue [Unknown]
  - Incorrect dose administered [Unknown]

NARRATIVE: CASE EVENT DATE: 20220101
